FAERS Safety Report 8835784 (Version 2)
Quarter: 2012Q4

REPORT INFORMATION
  Report Type: 
  Country: JP (occurrence: JP)
  Receive Date: 20121011
  Receipt Date: 20121124
  Transmission Date: 20130627
  Serious: Yes (Hospitalization)
  Sender: FDA-Public Use
  Company Number: JP-009507513-1210JPN004883

PATIENT
  Age: 61 Year
  Sex: Male
  Weight: 58 kg

DRUGS (12)
  1. PEGINTRON [Suspect]
     Indication: CHRONIC HEPATITIS C
     Dosage: UNK, qw
     Route: 058
     Dates: start: 20120809, end: 20120809
  2. PEGINTRON [Suspect]
     Dosage: 1.5 Microgram per kilogram, qw
     Route: 058
     Dates: start: 20120822, end: 20121018
  3. REBETOL [Suspect]
     Indication: CHRONIC HEPATITIS C
     Dosage: 600 mg, qd
     Route: 048
     Dates: start: 20120802, end: 20120809
  4. REBETOL [Suspect]
     Dosage: 600 mg, qd
     Route: 048
     Dates: start: 20120822, end: 20121025
  5. TELAVIC [Suspect]
     Indication: CHRONIC HEPATITIS C
     Dosage: 2250 mg,  qd
     Route: 048
     Dates: start: 20120802, end: 20120809
  6. URSO [Concomitant]
     Indication: CHRONIC HEPATITIS C
     Dosage: 600 mg, qd
     Route: 048
  7. GLACTIV [Concomitant]
     Route: 048
  8. AMLODIN (AMLODIPINE BESYLATE) [Concomitant]
     Route: 048
  9. BLOPRESS [Concomitant]
     Route: 048
  10. MAGLAX (MAGNESIUM OXIDE) [Concomitant]
     Route: 048
  11. TERNELIN [Concomitant]
     Route: 048
  12. ROHYPNOL [Concomitant]
     Route: 048

REACTIONS (1)
  - Renal failure [Recovered/Resolved]
